FAERS Safety Report 6122638-6 (Version None)
Quarter: 2009Q1

REPORT INFORMATION
  Report Type: 
  Country: None (occurrence: None)
  Receive Date: 20090318
  Receipt Date: 20090305
  Transmission Date: 20090719
  Serious: Yes (Hospitalization, Other)
  Sender: FDA-Public Use
  Company Number: US-ROCHE-433858

PATIENT
  Sex: Male
  Weight: 59 kg

DRUGS (2)
  1. ACCUTANE [Suspect]
     Indication: ACNE
     Route: 048
     Dates: start: 20010501, end: 20011201
  2. ACCUTANE [Suspect]
     Route: 048
     Dates: start: 20020506, end: 20020801

REACTIONS (11)
  - ABDOMINAL PAIN [None]
  - APPENDICITIS [None]
  - COLITIS ULCERATIVE [None]
  - DUODENITIS [None]
  - GASTRIC ULCER [None]
  - GASTRITIS [None]
  - GASTROOESOPHAGEAL REFLUX DISEASE [None]
  - ILEUS [None]
  - INFLAMMATORY BOWEL DISEASE [None]
  - OESOPHAGITIS [None]
  - PHARYNGITIS [None]
